FAERS Safety Report 4941974-X (Version None)
Quarter: 2006Q1

REPORT INFORMATION
  Report Type: 
  Country: None (occurrence: None)
  Receive Date: 20060313
  Receipt Date: 20050823
  Transmission Date: 20060701
  Serious: Yes (Other)
  Sender: FDA-Public Use
  Company Number: US-MERCK-0508USA03922

PATIENT
  Age: 71 Year
  Sex: Female
  Weight: 57 kg

DRUGS (6)
  1. VIOXX [Suspect]
     Indication: ARTHRITIS
     Route: 048
     Dates: start: 20010419, end: 20040827
  2. TOPROL-XL [Concomitant]
     Route: 065
     Dates: start: 19980101
  3. PRINIVIL [Concomitant]
     Indication: CARDIAC DISORDER
     Route: 065
     Dates: start: 19980703
  4. ASPIRIN [Concomitant]
     Indication: PROPHYLAXIS
     Route: 065
     Dates: start: 20040201
  5. ESTRACE [Concomitant]
     Indication: HORMONE REPLACEMENT THERAPY
     Route: 065
     Dates: start: 19960919, end: 20030501
  6. PLAVIX [Concomitant]
     Route: 065
     Dates: start: 19980703

REACTIONS (2)
  - CEREBROVASCULAR ACCIDENT [None]
  - INJURY [None]
